FAERS Safety Report 8908540 (Version 2)
Quarter: 2012Q4

REPORT INFORMATION
  Report Type: 
  Country: CH (occurrence: CH)
  Receive Date: 20121114
  Receipt Date: 20121119
  Transmission Date: 20130627
  Serious: Yes (Hospitalization, Other)
  Sender: FDA-Public Use
  Company Number: CH-TEVA-367818ISR

PATIENT
  Age: 78 Year
  Sex: Male

DRUGS (2)
  1. OLFEN [Suspect]
     Indication: BACK PAIN
     Dosage: 50 Milligram Daily;
     Route: 048
     Dates: start: 20120909, end: 20120916
  2. AMILORIDE HYDROCHLORIDE\HYDROCHLOROTHIAZIDE [Suspect]
     Indication: PRODUCT USED FOR UNKNOWN INDICATION
     Dosage: 1 Dosage forms Daily; 25 mg HCT/ 2.5 mg amiloride
     Route: 048
     Dates: start: 20120923, end: 20120928

REACTIONS (6)
  - Renal failure acute [Unknown]
  - Oedema peripheral [Unknown]
  - Nausea [Unknown]
  - Vomiting [Unknown]
  - Metabolic acidosis [Unknown]
  - Hyperkalaemia [Unknown]
